FAERS Safety Report 7040593-1 (Version None)
Quarter: 2010Q4

REPORT INFORMATION
  Report Type: 
  Country: None (occurrence: None)
  Receive Date: 20101012
  Receipt Date: 20101007
  Transmission Date: 20110411
  Serious: Yes (Other)
  Sender: FDA-Public Use
  Company Number: FR-BRISTOL-MYERS SQUIBB COMPANY-15326879

PATIENT
  Age: 53 Year
  Sex: Female

DRUGS (5)
  1. AXEPIM [Suspect]
     Indication: PLEURISY
     Dates: start: 20100804, end: 20100826
  2. FLAGYL [Suspect]
     Indication: PLEURISY
     Dates: start: 20100804, end: 20100826
  3. TRIFLUCAN [Suspect]
     Indication: PLEURISY
     Dates: start: 20100812, end: 20100826
  4. TAVANIC [Suspect]
     Indication: PLEURISY
     Dates: start: 20100812, end: 20100826
  5. CANCIDAS [Concomitant]
     Dosage: RESTARTED ON 26AUG2010
     Dates: start: 20100730, end: 20100812

REACTIONS (1)
  - AGRANULOCYTOSIS [None]
